FAERS Safety Report 15075022 (Version 2)
Quarter: 2023Q4

REPORT INFORMATION
  Report Type: Report from Study
  Country: US (occurrence: US)
  Receive Date: 20180627
  Receipt Date: 20231109
  Transmission Date: 20240110
  Serious: No
  Sender: FDA-Public Use
  Company Number: US-SAOL THERAPEUTICS-2017SAO01670

PATIENT

DRUGS (6)
  1. BACLOFEN [Suspect]
     Active Substance: BACLOFEN
     Dosage: 90.05 ?G, \DAY
     Route: 037
     Dates: start: 20170914
  2. BACLOFEN [Suspect]
     Active Substance: BACLOFEN
     Dosage: 125.62 ?G, \DAY; MAX DOSE
     Route: 037
     Dates: start: 20170914
  3. HYDROMORPHONE [Suspect]
     Active Substance: HYDROMORPHONE
     Dosage: 0.600 MG, \DAY
     Route: 037
     Dates: start: 20170811
  4. HYDROMORPHONE [Suspect]
     Active Substance: HYDROMORPHONE
     Dosage: 0.837 MG, \DAY; MAX DOSE
     Route: 037
     Dates: start: 20170811
  5. BUPIVACAINE [Suspect]
     Active Substance: BUPIVACAINE
     Dosage: 9.005 MG, \DAY
     Route: 037
     Dates: start: 20170811
  6. BUPIVACAINE [Suspect]
     Active Substance: BUPIVACAINE
     Dosage: 12.562 MG, \DAY; MAX DOSE
     Route: 037
     Dates: start: 20170811

REACTIONS (1)
  - Hypoaesthesia [Not Recovered/Not Resolved]

NARRATIVE: CASE EVENT DATE: 20171016
